FAERS Safety Report 6335828-4 (Version None)
Quarter: 2009Q3

REPORT INFORMATION
  Report Type: 
  Country: None (occurrence: None)
  Receive Date: 20090828
  Receipt Date: 20090814
  Transmission Date: 20100115
  Serious: Yes (Death, Disabling, Congenital Anomaly)
  Sender: FDA-Public Use
  Company Number: 8048806

PATIENT
  Sex: Male

DRUGS (2)
  1. KEPPRA [Suspect]
     Indication: EPILEPSY
     Dosage: 500 MG /D TRP
     Route: 064
     Dates: start: 20080524, end: 20090203
  2. EPITOMAX [Suspect]
     Dosage: 400 MG /D TRP
     Route: 064
     Dates: start: 20080524, end: 20090203

REACTIONS (13)
  - CEREBRAL HAEMORRHAGE [None]
  - CHOLESTASIS [None]
  - CONGENITAL ANOMALY [None]
  - CONVULSION [None]
  - DIAPHRAGMATIC HERNIA [None]
  - ELECTROENCEPHALOGRAM ABNORMAL [None]
  - FOETAL MALFORMATION [None]
  - GASTROINTESTINAL OBSTRUCTION [None]
  - HYPOXIC ENCEPHALOPATHY [None]
  - MATERNAL DRUGS AFFECTING FOETUS [None]
  - PULMONARY ARTERIAL HYPERTENSION [None]
  - RESPIRATORY DISTRESS [None]
  - SYNDACTYLY [None]
